FAERS Safety Report 14802609 (Version 1)
Quarter: 2018Q2

REPORT INFORMATION
  Report Type: Spontaneous
  Country: PT (occurrence: PT)
  Receive Date: 20180424
  Receipt Date: 20180424
  Transmission Date: 20180711
  Serious: Yes (Hospitalization, Other)
  Sender: FDA-Public Use
  Company Number: PT-SA-2018SA105800

PATIENT
  Age: 68 Year
  Sex: Male

DRUGS (12)
  1. IBUPROFEN. [Suspect]
     Active Substance: IBUPROFEN
     Route: 065
  2. AMLODIPINE BESILATE [Suspect]
     Active Substance: AMLODIPINE BESYLATE
     Route: 065
  3. DIAZEPAM. [Suspect]
     Active Substance: DIAZEPAM
     Route: 065
  4. COLCHICINE. [Suspect]
     Active Substance: COLCHICINE
     Indication: GOUT
     Route: 065
  5. CHOPHYTOL (CYNARA SCOLYMUS) [Suspect]
     Active Substance: HERBALS
     Indication: GOUT
     Route: 065
  6. GLICLAZIDE [Concomitant]
     Active Substance: GLICLAZIDE
     Route: 065
  7. CLONIXIN [Suspect]
     Active Substance: CLONIXIN
     Indication: GOUT
     Route: 065
  8. METFORMIN [Concomitant]
     Active Substance: METFORMIN HYDROCHLORIDE
     Route: 065
  9. ACETYLSALICYLIC ACID [Suspect]
     Active Substance: ASPIRIN
     Route: 065
  10. GALENIC /ENALAPRIL/HYDROCHLOROTHIAZIDE/ [Suspect]
     Active Substance: ENALAPRIL MALEATE\HYDROCHLOROTHIAZIDE
     Route: 065
  11. ENALAPRIL [Suspect]
     Active Substance: ENALAPRIL
     Dosage: DOSAGE TEXT 20 MG/12.5 MG
     Route: 065
  12. INDAPAMIDE. [Suspect]
     Active Substance: INDAPAMIDE
     Route: 065

REACTIONS (12)
  - Drug interaction [Unknown]
  - Myalgia [Recovered/Resolved]
  - Drug-induced liver injury [Recovered/Resolved]
  - Herbal interaction [Unknown]
  - Cholestasis [Recovered/Resolved]
  - Hyperglycaemia [Recovered/Resolved]
  - Gout [Unknown]
  - Thrombocytosis [Recovered/Resolved]
  - Leukocytosis [Recovered/Resolved]
  - Toxicity to various agents [Recovered/Resolved]
  - Neutrophilia [Recovered/Resolved]
  - Hepatotoxicity [Recovered/Resolved]
